FAERS Safety Report 5329233-7 (Version None)
Quarter: 2007Q2

REPORT INFORMATION
  Report Type: 
  Country: None (occurrence: None)
  Receive Date: 20070518
  Receipt Date: 20070507
  Transmission Date: 20071010
  Serious: Yes (Other)
  Sender: FDA-Public Use
  Company Number: US-PFIZER INC-2007037025

PATIENT
  Sex: Male
  Weight: 103.9 kg

DRUGS (5)
  1. BEXTRA [Suspect]
     Indication: TENDONITIS
     Dates: start: 20040720, end: 20040723
  2. ATENOLOL [Concomitant]
  3. ALLEGRA [Concomitant]
  4. MONTELUKAST SODIUM [Concomitant]
  5. PREVACID [Concomitant]

REACTIONS (1)
  - STEVENS-JOHNSON SYNDROME [None]
